FAERS Safety Report 9098551 (Version 1)
Quarter: 2013Q1

REPORT INFORMATION
  Report Type: Spontaneous
  Country: FR (occurrence: FR)
  Receive Date: 20130213
  Receipt Date: 20130213
  Transmission Date: 20140127
  Serious: Yes (Hospitalization)
  Sender: FDA-Public Use
  Company Number: FR-ASTRAZENECA-2013SE09309

PATIENT
  Age: 23532 Day
  Sex: Male

DRUGS (9)
  1. INEXIUM [Suspect]
     Route: 048
     Dates: start: 20121220, end: 20130119
  2. TARGOCID [Suspect]
     Route: 065
     Dates: start: 20130104
  3. TARGOCID [Suspect]
     Route: 065
     Dates: end: 20130117
  4. CANDESARTAN/HYDROCHLOROTHIAZIDE [Concomitant]
  5. TARDYFERON [Concomitant]
  6. DAFALGAN [Concomitant]
  7. IMOVANE [Concomitant]
  8. ZYVOXID [Concomitant]
  9. CALCIPARINE [Concomitant]

REACTIONS (3)
  - Eczema [Recovering/Resolving]
  - Thrombocytopenia [Recovering/Resolving]
  - Hepatocellular injury [Recovering/Resolving]
